FAERS Safety Report 4981420-3 (Version None)
Quarter: 2006Q2

REPORT INFORMATION
  Report Type: 
  Country: None (occurrence: None)
  Receive Date: 20060424
  Receipt Date: 20060117
  Transmission Date: 20061013
  Serious: Yes (Hospitalization, Other)
  Sender: FDA-Public Use
  Company Number: US-MERCK-0601USA02148

PATIENT
  Age: 65 Year
  Sex: Male
  Weight: 73 kg

DRUGS (2)
  1. VIOXX [Suspect]
     Indication: PAIN
     Route: 048
     Dates: start: 20010101, end: 20021101
  2. VIOXX [Suspect]
     Route: 048
     Dates: start: 20010101, end: 20021101

REACTIONS (7)
  - CEREBROVASCULAR ACCIDENT [None]
  - DYSPEPSIA [None]
  - ERUCTATION [None]
  - GLUCOSE TOLERANCE IMPAIRED [None]
  - RENAL ARTERY STENT PLACEMENT [None]
  - RENAL DISORDER [None]
  - SCAR [None]
